FAERS Safety Report 8699782 (Version 3)
Quarter: 2012Q4

REPORT INFORMATION
  Report Type: 
  Country: US (occurrence: US)
  Receive Date: 20120802
  Receipt Date: 20120928
  Transmission Date: 20130627
  Serious: Yes (Disabling)
  Sender: FDA-Public Use
  Company Number: US-JNJFOC-20120712946

PATIENT
  Age: 36 Year
  Sex: Female
  Weight: 61.24 kg

DRUGS (2)
  1. ORTHO MICRONOR [Suspect]
     Indication: CONTRACEPTION
     Route: 048
     Dates: start: 201201, end: 20120627
  2. PRENATAL  VITAMINS [Concomitant]
     Route: 065

REACTIONS (2)
  - Age-related macular degeneration [Recovering/Resolving]
  - Vaginal haemorrhage [Unknown]
